FAERS Safety Report 6545973-6 (Version None)
Quarter: 2010Q1

REPORT INFORMATION
  Report Type: 
  Country: None (occurrence: None)
  Receive Date: 20100121
  Receipt Date: 20100121
  Transmission Date: 20100710
  Serious: Yes (Other)
  Sender: FDA-Public Use
  Company Number: None

PATIENT
  Age: 49 Year
  Sex: Male
  Weight: 108.8633 kg

DRUGS (2)
  1. ROLAIDS PEPPERMINT 150 TABLETS W/550MG OF CALCIUM CARBONATE MCNEIL CON [Suspect]
     Indication: DYSPEPSIA
     Dosage: 4 TABLETS AFTER HEAVY MEAL PO SINCE LATE 1980'S
     Route: 048
  2. ROLAIDS PEPPERMINT 150 W/550MG OF CALCIUM CARBONATE MCNEIL CONSUMER HE [Suspect]
     Indication: DYSPEPSIA
     Dosage: 4 TABLETS AFTER HEAVY MEAL PO SINCE LATE 1980'S
     Route: 048

REACTIONS (2)
  - PRODUCT QUALITY ISSUE [None]
  - URTICARIA [None]
